FAERS Safety Report 23741917 (Version 1)
Quarter: 2024Q2

REPORT INFORMATION
  Report Type: Spontaneous
  Country: FR (occurrence: FR)
  Receive Date: 20240415
  Receipt Date: 20240415
  Transmission Date: 20240716
  Serious: Yes (Other)
  Sender: FDA-Public Use
  Company Number: None

PATIENT
  Age: 70 Year
  Sex: Male
  Weight: 83 kg

DRUGS (6)
  1. SUFENTANIL [Suspect]
     Active Substance: SUFENTANIL
     Indication: Anaesthesia
     Dosage: 30 MICROGRAM (1 TOTAL)
     Route: 042
     Dates: start: 20230918, end: 20230918
  2. DEXAMETHASONE [Suspect]
     Active Substance: DEXAMETHASONE
     Indication: Anaesthesia
     Dosage: 8 MILLIGRAM (1 TOTAL)
     Route: 042
     Dates: start: 20230918, end: 20230918
  3. ROCURONIUM [Suspect]
     Active Substance: ROCURONIUM BROMIDE
     Indication: Anaesthesia
     Dosage: 60 MILLIGRAM (1 TOTAL)
     Route: 042
     Dates: start: 20230918, end: 20230918
  4. CEFAZOLIN SODIUM [Suspect]
     Active Substance: CEFAZOLIN SODIUM
     Indication: Anaesthesia
     Dosage: 2 GRAM (1 TOTAL)
     Route: 042
     Dates: start: 20230918, end: 20230918
  5. PROPOFOL LIPURO [Suspect]
     Active Substance: PROPOFOL
     Indication: Anaesthesia
     Dosage: 250 MILLIGRAM (1 TOTAL)
     Route: 042
     Dates: start: 20230918, end: 20230918
  6. KETAMINE [Suspect]
     Active Substance: KETAMINE
     Indication: Anaesthesia
     Dosage: 30 MILLIGRAM (1 TOTAL)
     Route: 042
     Dates: start: 20230918, end: 20230918

REACTIONS (1)
  - Rash [Recovered/Resolved]

NARRATIVE: CASE EVENT DATE: 20230918
